FAERS Safety Report 6426564-4 (Version None)
Quarter: 2009Q4

REPORT INFORMATION
  Report Type: 
  Country: None (occurrence: None)
  Receive Date: 20091104
  Receipt Date: 20091026
  Transmission Date: 20100525
  Serious: Yes (Death, Other)
  Sender: FDA-Public Use
  Company Number: GB-JNJFOC-20090404213

PATIENT
  Sex: Male

DRUGS (1)
  1. REMICADE [Suspect]
     Indication: RHEUMATOID ARTHRITIS
     Dosage: HAS BEEN ON INFLIXIMAB FOR 7 YEARS
     Route: 042

REACTIONS (3)
  - GASTROINTESTINAL DISORDER [None]
  - MYOCARDIAL INFARCTION [None]
  - NEOPLASM [None]
